FAERS Safety Report 5338609-3 (Version None)
Quarter: 2007Q2

REPORT INFORMATION
  Report Type: 
  Country: None (occurrence: None)
  Receive Date: 20070322
  Receipt Date: 20060927
  Transmission Date: 20071010
  Serious: Yes (Other)
  Sender: FDA-Public Use
  Company Number: 200612889BCC

PATIENT
  Age: 69 Year
  Sex: Female
  Weight: 81.6475 kg

DRUGS (7)
  1. ALEVE [Suspect]
     Indication: ARTHRALGIA
     Dosage: 220 MG, ONCE, ORAL
     Route: 048
     Dates: start: 20060701
  2. CALCIUM CHLORIDE [Concomitant]
  3. GLUCOSAMINE [Concomitant]
  4. LIPITOR [Concomitant]
  5. PREVACID [Concomitant]
  6. VIVELLE-DOT [Concomitant]
  7. OSTEO BI-FLEX [Concomitant]

REACTIONS (8)
  - ANAPHYLACTIC REACTION [None]
  - DYSPNOEA [None]
  - HYPERSENSITIVITY [None]
  - HYPOTENSION [None]
  - LOSS OF CONSCIOUSNESS [None]
  - PRURITUS [None]
  - PRURITUS GENERALISED [None]
  - SWELLING [None]
